FAERS Safety Report 8411420-2 (Version None)
Quarter: 2012Q2

REPORT INFORMATION
  Report Type: 
  Country: None (occurrence: None)
  Receive Date: 20120605
  Receipt Date: 20120507
  Transmission Date: 20120825
  Serious: No
  Sender: FDA-Public Use
  Company Number: US-AMGEN-USASP2012029027

PATIENT
  Sex: Female

DRUGS (7)
  1. SYNTHROID [Concomitant]
     Dosage: 1 MUG, UNK
     Dates: start: 20111201
  2. DIOVAN HCT [Concomitant]
     Dosage: 1 MG, UNK
     Dates: start: 20111201
  3. SIMVASTATIN [Concomitant]
     Dosage: 1 MG, UNK
  4. METOPROLOL SUCCINATE [Concomitant]
     Dosage: 1 MG, UNK
  5. ENBREL [Suspect]
     Indication: PSORIATIC ARTHROPATHY
     Dosage: 50 MG, QWK
     Dates: start: 20111001
  6. ZANTAC [Concomitant]
     Dosage: 1 MG, UNK
  7. VITAMIN D [Concomitant]
     Dosage: 1 UNK, UNK

REACTIONS (1)
  - INJECTION SITE HAEMATOMA [None]
